FAERS Safety Report 25708687 (Version 1)
Quarter: 2025Q3

REPORT INFORMATION
  Report Type: Spontaneous
  Country: CN (occurrence: CN)
  Receive Date: 20250821
  Receipt Date: 20250821
  Transmission Date: 20251021
  Serious: Yes (Hospitalization, Other)
  Sender: BOEHRINGER INGELHEIM
  Company Number: CN-Komodo Health-a23aa000009XmThAAK

PATIENT
  Age: 71 Year
  Sex: Male
  Weight: 57.5 kg

DRUGS (3)
  1. LINAGLIPTIN [Suspect]
     Active Substance: LINAGLIPTIN
     Indication: Type 2 diabetes mellitus
  2. VOGLIBOSE [Suspect]
     Active Substance: VOGLIBOSE
     Indication: Type 2 diabetes mellitus
  3. VOGLIBOSE [Suspect]
     Active Substance: VOGLIBOSE

REACTIONS (5)
  - Dermatitis exfoliative [Not Recovered/Not Resolved]
  - Back disorder [Unknown]
  - Hypersensitivity [Unknown]
  - Rash [Not Recovered/Not Resolved]
  - Product use issue [Unknown]

NARRATIVE: CASE EVENT DATE: 20250301
